FAERS Safety Report 10377012 (Version 2)
Quarter: 2014Q3

REPORT INFORMATION
  Report Type: Spontaneous
  Country: GB (occurrence: US)
  Receive Date: 20140812
  Receipt Date: 20140902
  Transmission Date: 20150326
  Serious: No
  Sender: FDA-Public Use
  Company Number: GB-009507513-1407USA008725

PATIENT
  Sex: Male

DRUGS (1)
  1. AVOBENZONE (+) HOMOSALATE (+) OCTISALATE (+) OCTOCRYLENE (+) OXYBENZON [Suspect]
     Active Substance: OCTINOXATE\OCTOCRYLENE

REACTIONS (2)
  - Erythema [Unknown]
  - Rash [Unknown]
